FAERS Safety Report 23989811 (Version 1)
Quarter: 2024Q2

REPORT INFORMATION
  Report Type: Spontaneous
  Country: US (occurrence: US)
  Receive Date: 20240619
  Receipt Date: 20240619
  Transmission Date: 20240716
  Serious: Yes (Other)
  Sender: FDA-Public Use
  Company Number: US-CLINIGEN-US-CLI-2024-010257

PATIENT
  Age: 8 Year
  Sex: Male

DRUGS (14)
  1. DEXRAZOXANE HYDROCHLORIDE [Suspect]
     Active Substance: DEXRAZOXANE HYDROCHLORIDE
     Indication: T-cell type acute leukaemia
  2. DEXRAZOXANE HYDROCHLORIDE [Suspect]
     Active Substance: DEXRAZOXANE HYDROCHLORIDE
     Indication: Chemotherapy
  3. VINCRISTINE [Concomitant]
     Active Substance: VINCRISTINE
     Indication: T-cell type acute leukaemia
  4. VINCRISTINE [Concomitant]
     Active Substance: VINCRISTINE
     Indication: Chemotherapy
  5. DAUNORUBICIN [Concomitant]
     Active Substance: DAUNORUBICIN
     Indication: T-cell type acute leukaemia
  6. DAUNORUBICIN [Concomitant]
     Active Substance: DAUNORUBICIN
     Indication: Chemotherapy
  7. CALASPARGASE PEGOL [Concomitant]
     Active Substance: CALASPARGASE PEGOL
     Indication: T-cell type acute leukaemia
  8. CALASPARGASE PEGOL [Concomitant]
     Active Substance: CALASPARGASE PEGOL
     Indication: Chemotherapy
  9. DEXAMETHASONE [Concomitant]
     Active Substance: DEXAMETHASONE
     Indication: T-cell type acute leukaemia
  10. DEXAMETHASONE [Concomitant]
     Active Substance: DEXAMETHASONE
     Indication: Chemotherapy
  11. CYTARABINE [Concomitant]
     Active Substance: CYTARABINE
     Indication: T-cell type acute leukaemia
  12. CYTARABINE [Concomitant]
     Active Substance: CYTARABINE
     Indication: Chemotherapy
  13. METHOTREXATE [Concomitant]
     Active Substance: METHOTREXATE
     Indication: T-cell type acute leukaemia
  14. METHOTREXATE [Concomitant]
     Active Substance: METHOTREXATE
     Indication: Chemotherapy

REACTIONS (1)
  - Off label use [Unknown]
